FAERS Safety Report 7913086-4 (Version None)
Quarter: 2011Q4

REPORT INFORMATION
  Report Type: 
  Country: None (occurrence: None)
  Receive Date: 20111114
  Receipt Date: 20111107
  Transmission Date: 20120403
  Serious: Yes (Hospitalization)
  Sender: FDA-Public Use
  Company Number: JP-COVIDIEN/TYCO HEALTHCARE/MALLINCKRODT-T201102422

PATIENT
  Sex: Male

DRUGS (2)
  1. TARCEVA [Concomitant]
  2. METHADONE HCL [Suspect]
     Indication: CANCER PAIN
     Dosage: 20 MG, BID
     Route: 048
     Dates: start: 20110210

REACTIONS (1)
  - CARCINOEMBRYONIC ANTIGEN INCREASED [None]
